FAERS Safety Report 20891750 (Version 1)
Quarter: 2022Q2

REPORT INFORMATION
  Report Type: Spontaneous
  Country: MY (occurrence: MY)
  Receive Date: 20220530
  Receipt Date: 20220530
  Transmission Date: 20220721
  Serious: Yes (Other)
  Sender: FDA-Public Use
  Company Number: MY-BoehringerIngelheim-2022-BI-173174

PATIENT
  Sex: Female

DRUGS (2)
  1. AFATINIB [Suspect]
     Active Substance: AFATINIB
     Indication: EGFR gene mutation
     Route: 065
  2. AFATINIB [Suspect]
     Active Substance: AFATINIB
     Indication: Non-small cell lung cancer

REACTIONS (2)
  - Malignant neoplasm progression [Unknown]
  - Off label use [Unknown]
